FAERS Safety Report 21882063 (Version 1)
Quarter: 2023Q1

REPORT INFORMATION
  Report Type: Spontaneous
  Country: US (occurrence: US)
  Receive Date: 20230119
  Receipt Date: 20230119
  Transmission Date: 20230418
  Serious: No
  Sender: FDA-Public Use
  Company Number: US-LEO Pharma-348461

PATIENT
  Sex: Male
  Weight: 86 kg

DRUGS (23)
  1. ESCITALOPRAM [Concomitant]
     Active Substance: ESCITALOPRAM OXALATE
     Indication: Product used for unknown indication
  2. AMLODIPINE [Concomitant]
     Active Substance: AMLODIPINE BESYLATE
     Indication: Product used for unknown indication
  3. CLOBETASOL PROPIONATE [Concomitant]
     Active Substance: CLOBETASOL PROPIONATE
     Indication: Product used for unknown indication
  4. CLOBETASOL [Suspect]
     Active Substance: CLOBETASOL
     Indication: Product used for unknown indication
  5. METOPROLOL [Concomitant]
     Active Substance: METOPROLOL
     Indication: Product used for unknown indication
  6. MONTELUKAST [Concomitant]
     Active Substance: MONTELUKAST SODIUM
     Indication: Product used for unknown indication
  7. ADBRY [Suspect]
     Active Substance: TRALOKINUMAB-LDRM
     Indication: Dermatitis atopic
     Dosage: DOSAGE : 4 INJECTIONS FOR THE INITIAL DOSE THEN
     Route: 058
  8. ADBRY [Suspect]
     Active Substance: TRALOKINUMAB-LDRM
     Indication: Dermatitis atopic
     Dosage: DOSAGE : 4 INJECTIONS FOR THE INITIAL DOSE THEN
     Route: 058
  9. ADBRY [Suspect]
     Active Substance: TRALOKINUMAB-LDRM
     Indication: Dermatitis atopic
     Dosage: 2 INJECTIONS EVERY TWO WEEKS UNDER THE SKIN
     Route: 058
  10. ADBRY [Suspect]
     Active Substance: TRALOKINUMAB-LDRM
     Indication: Dermatitis atopic
     Dosage: 2 INJECTIONS EVERY TWO WEEKS UNDER THE SKIN
     Route: 058
  11. ADBRY [Suspect]
     Active Substance: TRALOKINUMAB-LDRM
     Indication: Asthma
     Dosage: DOSAGE : 4 INJECTIONS FOR THE INITIAL DOSE THEN
     Route: 058
  12. ADBRY [Suspect]
     Active Substance: TRALOKINUMAB-LDRM
     Indication: Asthma
     Dosage: DOSAGE : 4 INJECTIONS FOR THE INITIAL DOSE THEN
     Route: 058
  13. ADBRY [Suspect]
     Active Substance: TRALOKINUMAB-LDRM
     Indication: Asthma
     Dosage: 2 INJECTIONS EVERY TWO WEEKS UNDER THE SKIN
     Route: 058
  14. ADBRY [Suspect]
     Active Substance: TRALOKINUMAB-LDRM
     Indication: Asthma
     Dosage: 2 INJECTIONS EVERY TWO WEEKS UNDER THE SKIN
     Route: 058
  15. ADBRY [Suspect]
     Active Substance: TRALOKINUMAB-LDRM
     Indication: Dermatitis atopic
     Dosage: DOSAGE : 4 INJECTIONS FOR THE INITIAL DOSE THEN
     Route: 058
  16. ADBRY [Suspect]
     Active Substance: TRALOKINUMAB-LDRM
     Indication: Dermatitis atopic
     Dosage: DOSAGE : 4 INJECTIONS FOR THE INITIAL DOSE THEN
     Route: 058
  17. ADBRY [Suspect]
     Active Substance: TRALOKINUMAB-LDRM
     Indication: Dermatitis atopic
     Dosage: 2 INJECTIONS EVERY TWO WEEKS UNDER THE SKIN
     Route: 058
  18. ADBRY [Suspect]
     Active Substance: TRALOKINUMAB-LDRM
     Indication: Dermatitis atopic
     Dosage: 2 INJECTIONS EVERY TWO WEEKS UNDER THE SKIN
     Route: 058
  19. ADBRY [Suspect]
     Active Substance: TRALOKINUMAB-LDRM
     Indication: Asthma
     Dosage: DOSAGE : 4 INJECTIONS FOR THE INITIAL DOSE THEN
     Route: 058
  20. ADBRY [Suspect]
     Active Substance: TRALOKINUMAB-LDRM
     Indication: Asthma
     Dosage: DOSAGE : 4 INJECTIONS FOR THE INITIAL DOSE THEN
     Route: 058
  21. ADBRY [Suspect]
     Active Substance: TRALOKINUMAB-LDRM
     Indication: Asthma
     Dosage: 2 INJECTIONS EVERY TWO WEEKS UNDER THE SKIN
     Route: 058
  22. ADBRY [Suspect]
     Active Substance: TRALOKINUMAB-LDRM
     Indication: Asthma
     Dosage: 2 INJECTIONS EVERY TWO WEEKS UNDER THE SKIN
     Route: 058
  23. BUSPIRONE [Concomitant]
     Active Substance: BUSPIRONE HYDROCHLORIDE
     Indication: Product used for unknown indication

REACTIONS (3)
  - Dermatitis atopic [Unknown]
  - Product use in unapproved indication [Unknown]
  - Eczema [Unknown]
